FAERS Safety Report 14974043 (Version 1)
Quarter: 2018Q2

REPORT INFORMATION
  Report Type: Spontaneous
  Country: US (occurrence: US)
  Receive Date: 20180514
  Receipt Date: 20180514
  Transmission Date: 20180711
  Serious: Yes (Other)
  Sender: FDA-Public Use
  Company Number: None

PATIENT
  Age: 55 Year
  Sex: Female
  Weight: 135 kg

DRUGS (9)
  1. NYSTATIN. [Concomitant]
     Active Substance: NYSTATIN
     Dates: start: 20180430
  2. GABAPENTIN. [Concomitant]
     Active Substance: GABAPENTIN
     Dates: start: 20130812
  3. METFORMIN [Concomitant]
     Active Substance: METFORMIN HYDROCHLORIDE
     Dates: start: 20171120
  4. BACLOFEN. [Concomitant]
     Active Substance: BACLOFEN
     Dates: start: 20161202
  5. OMEGA-3-FATTY ACIDS [Concomitant]
     Dates: start: 20180101
  6. DULOXETINE. [Concomitant]
     Active Substance: DULOXETINE
     Dates: start: 20140312
  7. ATROVASTATIN [Concomitant]
     Active Substance: ATORVASTATIN CALCIUM
     Dates: start: 20150420
  8. JANUVIA [Suspect]
     Active Substance: SITAGLIPTIN PHOSPHATE
     Indication: TYPE 2 DIABETES MELLITUS
     Route: 048
     Dates: start: 20180508, end: 20180508
  9. PLAVIX [Concomitant]
     Active Substance: CLOPIDOGREL BISULFATE
     Dates: start: 20140305

REACTIONS (2)
  - Swelling face [None]
  - Peripheral swelling [None]

NARRATIVE: CASE EVENT DATE: 20180509
